FAERS Safety Report 26211205 (Version 1)
Quarter: 2025Q4

REPORT INFORMATION
  Report Type: Spontaneous
  Country: TH (occurrence: TH)
  Receive Date: 20251230
  Receipt Date: 20251230
  Transmission Date: 20260117
  Serious: Yes (Other)
  Sender: ROCHE
  Company Number: TH-ROCHE-10000469011

PATIENT
  Sex: Female

DRUGS (3)
  1. PHESGO [Suspect]
     Active Substance: HYALURONIDASE-ZZXF\PERTUZUMAB\TRASTUZUMAB
     Indication: Breast cancer
     Dosage: DOSE: 600 MG/600 MG
  2. HERCEPTIN [Suspect]
     Active Substance: TRASTUZUMAB
     Indication: Breast cancer
  3. PACLITAXEL [Suspect]
     Active Substance: PACLITAXEL
     Indication: Breast cancer

REACTIONS (2)
  - Stevens-Johnson syndrome [Unknown]
  - Rash [Unknown]
